FAERS Safety Report 4589261-6 (Version None)
Quarter: 2005Q1

REPORT INFORMATION
  Report Type: 
  Country: None (occurrence: None)
  Receive Date: 20050216
  Receipt Date: 20050204
  Transmission Date: 20050727
  Serious: Yes (Hospitalization, Other)
  Sender: FDA-Public Use
  Company Number: 2005-BP-01727RO

PATIENT
  Age: 51 Year
  Sex: Female
  Weight: 52.5 kg

DRUGS (3)
  1. LEUCOVORIN CALCIUM [Suspect]
     Indication: RECTAL CANCER METASTATIC
     Dosage: 75 MG/DAY, PO
     Route: 048
     Dates: start: 20040915, end: 20041005
  2. UFT [Suspect]
     Indication: RECTAL CANCER METASTATIC
     Dosage: 5 CAPSULES/DAY, PO
     Route: 048
     Dates: start: 20040915, end: 20041005
  3. IRINOTECAN [Suspect]
     Indication: RECTAL CANCER METASTATIC
     Dosage: 226 MG ONCE EVERY 2 WEEKS, IV
     Route: 042
     Dates: start: 20040915, end: 20040929

REACTIONS (3)
  - ANOREXIA [None]
  - DIARRHOEA [None]
  - WHITE BLOOD CELL COUNT DECREASED [None]
